FAERS Safety Report 12094169 (Version 6)
Quarter: 2018Q1

REPORT INFORMATION
  Report Type: Spontaneous
  Country: US (occurrence: US)
  Receive Date: 20160219
  Receipt Date: 20180131
  Transmission Date: 20180508
  Serious: Yes (Hospitalization)
  Sender: FDA-Public Use
  Company Number: US-ACTELION-A-US2016-131483

PATIENT
  Age: 2 Year
  Sex: Male

DRUGS (29)
  1. LEVALBUTEROL. [Concomitant]
     Active Substance: LEVALBUTEROL
     Dosage: 45 UNK, UNK
     Dates: start: 20171220
  2. BUDESONIDE. [Concomitant]
     Active Substance: BUDESONIDE
  3. SILDENAFIL. [Concomitant]
     Active Substance: SILDENAFIL
     Dosage: 10 MG, QID
  4. HYOSYNE [Concomitant]
     Active Substance: HYOSCYAMINE SULFATE
     Dosage: 0.125 ML, UNK
  5. TOBRAMYCIN. [Concomitant]
     Active Substance: TOBRAMYCIN
  6. POTASSIUM CHLORIDE. [Concomitant]
     Active Substance: POTASSIUM CHLORIDE
     Dosage: 10 %, UNK
     Dates: start: 20171023
  7. ORAPRED [Concomitant]
     Active Substance: PREDNISOLONE SODIUM PHOSPHATE
     Dosage: 15 MG, BID
     Dates: start: 20170530
  8. QVAR [Concomitant]
     Active Substance: BECLOMETHASONE DIPROPIONATE
     Dosage: 80 MCG
     Dates: start: 20171227
  9. TRACLEER [Suspect]
     Active Substance: BOSENTAN
     Indication: PULMONARY ARTERIAL HYPERTENSION
     Dosage: 15.625 MG, BID
     Route: 048
     Dates: start: 20140823
  10. TRACLEER [Suspect]
     Active Substance: BOSENTAN
     Dosage: UNK
     Route: 048
  11. FUROSEMIDE. [Concomitant]
     Active Substance: FUROSEMIDE
     Dosage: 10 UNK, UNK
     Dates: start: 20171030
  12. CHOLECALCIFEROL [Concomitant]
     Active Substance: CHOLECALCIFEROL
  13. LANSOPRAZOLE. [Concomitant]
     Active Substance: LANSOPRAZOLE
     Dosage: 15 MG, BID
  14. LEVALBUTEROL. [Concomitant]
     Active Substance: LEVALBUTEROL
     Dosage: 0.63 MG, UNK
     Dates: start: 20170925, end: 20180107
  15. QVAR [Concomitant]
     Active Substance: BECLOMETHASONE DIPROPIONATE
     Dosage: 80 MCG
     Dates: start: 20170830
  16. MIRALAX [Concomitant]
     Active Substance: POLYETHYLENE GLYCOL 3350
  17. LASIX [Concomitant]
     Active Substance: FUROSEMIDE
     Dosage: 10 MG, BID
  18. DIURIL [Concomitant]
     Active Substance: CHLOROTHIAZIDE
     Dosage: 250/5 ML
     Dates: start: 20170911
  19. PREDNISOLONE. [Concomitant]
     Active Substance: PREDNISOLONE
     Dosage: 15 MG/5 ML
     Dates: start: 20171220, end: 20171230
  20. LEVALBUTEROL. [Concomitant]
     Active Substance: LEVALBUTEROL
     Dosage: 0.63 MG, UNK
     Dates: start: 20171226
  21. LEVALBUTEROL. [Concomitant]
     Active Substance: LEVALBUTEROL
     Dosage: 0.63 MG, UNK
     Dates: start: 20170825
  22. HYOSCYAMINE. [Concomitant]
     Active Substance: HYOSCYAMINE
     Dosage: UNK
     Dates: start: 20180119
  23. PREDNISOLONE. [Concomitant]
     Active Substance: PREDNISOLONE
     Dosage: 15 MG/5 ML
     Dates: start: 20171001, end: 20171202
  24. POTASSIUM CHLORIDE. [Concomitant]
     Active Substance: POTASSIUM CHLORIDE
     Dosage: 10 %, UNK
     Dates: start: 20170104
  25. POTASSIUM CHLORIDE. [Concomitant]
     Active Substance: POTASSIUM CHLORIDE
     Dosage: 10 %, UNK
     Dates: start: 20171021, end: 20171218
  26. CHLOROTHIAZIDE. [Concomitant]
     Active Substance: CHLOROTHIAZIDE
  27. SPIRONOLACTONE. [Concomitant]
     Active Substance: SPIRONOLACTONE
     Dosage: 15 MG, BID
  28. REVATIO [Concomitant]
     Active Substance: SILDENAFIL CITRATE
     Dosage: 1 ML, Q6HRS
     Route: 048
     Dates: start: 20161228
  29. PREDNISOLONE. [Concomitant]
     Active Substance: PREDNISOLONE
     Dosage: 15 MG/5 ML
     Dates: start: 20180116, end: 20180126

REACTIONS (5)
  - Pneumonia [Recovered/Resolved]
  - Respiratory distress [Recovered/Resolved]
  - Respiratory syncytial virus infection [Unknown]
  - Tracheostomy malfunction [Recovered/Resolved]
  - Dyspnoea [Recovered/Resolved]

NARRATIVE: CASE EVENT DATE: 20160203
